FAERS Safety Report 4666568-5 (Version None)
Quarter: 2005Q2

REPORT INFORMATION
  Report Type: 
  Country: None (occurrence: None)
  Receive Date: 20050517
  Receipt Date: 20050504
  Transmission Date: 20051028
  Serious: Yes (Death, Hospitalization)
  Sender: FDA-Public Use
  Company Number: USA050291611

PATIENT
  Age: 80 Year
  Sex: Male

DRUGS (7)
  1. ALIMTA [Suspect]
     Indication: NON-SMALL CELL LUNG CANCER STAGE IIIB
     Dosage: 870 MG
     Dates: start: 20050130
  2. VITAMIN B-12 [Concomitant]
  3. FOLIC ACID [Concomitant]
  4. DEXAMETHASONE [Concomitant]
  5. AMBIEN [Concomitant]
  6. SALMETEROL [Concomitant]
  7. SIMVASTATIN (SIMVASTATIN RATIOPHARM) [Concomitant]

REACTIONS (11)
  - CARDIAC TAMPONADE [None]
  - CHRONIC OBSTRUCTIVE PULMONARY DISEASE [None]
  - HEPATIC CONGESTION [None]
  - HEPATIC FAILURE [None]
  - ISCHAEMIC HEPATITIS [None]
  - MALIGNANT NEOPLASM PROGRESSION [None]
  - NON-SMALL CELL LUNG CANCER [None]
  - PERICARDIAL EFFUSION MALIGNANT [None]
  - PERICARDITIS [None]
  - RENAL FAILURE [None]
  - RESPIRATORY FAILURE [None]
